FAERS Safety Report 10371215 (Version 1)
Quarter: 2014Q3

REPORT INFORMATION
  Report Type: Spontaneous
  Country: US (occurrence: None)
  Receive Date: 20140806
  Receipt Date: 20140806
  Transmission Date: 20150326
  Serious: Yes (Death, Other)
  Sender: FDA-Public Use
  Company Number: DAV-AE-MTX-14-33

PATIENT
  Age: 76 Year
  Sex: Female

DRUGS (2)
  1. INFLIXIMAB [Concomitant]
     Active Substance: INFLIXIMAB
  2. METHOTREXATE [Suspect]
     Active Substance: METHOTREXATE
     Indication: RHEUMATOID ARTHRITIS

REACTIONS (6)
  - Gingival bleeding [None]
  - Gingival swelling [None]
  - Haemoglobin decreased [None]
  - Epstein-Barr virus infection [None]
  - Lymphoproliferative disorder [None]
  - Aortic aneurysm rupture [None]
